FAERS Safety Report 10579874 (Version 1)
Quarter: 2014Q4

REPORT INFORMATION
  Report Type: Spontaneous
  Country: DE (occurrence: DE)
  Receive Date: 20141112
  Receipt Date: 20141112
  Transmission Date: 20150529
  Serious: Yes (Congenital Anomaly, Other)
  Sender: FDA-Public Use
  Company Number: GXKR2014DE004164

PATIENT

DRUGS (4)
  1. DOCITON [Suspect]
     Active Substance: PROPRANOLOL HYDROCHLORIDE
     Indication: TACHYCARDIA
     Dosage: 80 MG/D REDUCED TO 10
     Route: 064
     Dates: start: 20131002, end: 20140529
  2. THIAMAZOL HEXAL [Suspect]
     Active Substance: METHIMAZOLE
     Indication: HYPERTHYROIDISM
     Dosage: 80 MG/D SLOWLY REDUCED TO 2.5
     Route: 064
     Dates: start: 20131001, end: 20140529
  3. CEFUROXIME. [Concomitant]
     Active Substance: CEFUROXIME
     Indication: SINUSITIS
     Route: 064
     Dates: start: 20130918, end: 20130928
  4. FOLIO JODFREI [Concomitant]
     Indication: PROPHYLAXIS OF NEURAL TUBE DEFECT
     Dosage: 0.4 [MG/D ]
     Route: 064
     Dates: start: 20131118, end: 20140529

REACTIONS (6)
  - Syndactyly [Not Recovered/Not Resolved]
  - Small for dates baby [Unknown]
  - Foetal growth restriction [None]
  - Aplasia cutis congenita [Unknown]
  - Oligohydramnios [None]
  - Maternal drugs affecting foetus [None]

NARRATIVE: CASE EVENT DATE: 20140529
